FAERS Safety Report 8605553-5 (Version None)
Quarter: 2012Q3

REPORT INFORMATION
  Report Type: 
  Country: None (occurrence: None)
  Receive Date: 20120820
  Receipt Date: 20120814
  Transmission Date: 20120928
  Serious: Yes (Other)
  Sender: FDA-Public Use
  Company Number: US-PFIZER INC-2012157211

PATIENT
  Age: 7 Year
  Sex: Male
  Weight: 27.664 kg

DRUGS (1)
  1. FLAGYL [Suspect]
     Dosage: 3.5 ML, 3X/DAY
     Route: 048
     Dates: start: 20120521, end: 20120527

REACTIONS (1)
  - CLOSTRIDIAL INFECTION [None]
